FAERS Safety Report 5021970-7 (Version None)
Quarter: 2006Q2

REPORT INFORMATION
  Report Type: 
  Country: None (occurrence: None)
  Receive Date: 20060605
  Receipt Date: 20060523
  Transmission Date: 20061013
  Serious: Yes (Death)
  Sender: FDA-Public Use
  Company Number: 2006069654

PATIENT
  Age: 60 Year
  Sex: Female

DRUGS (2)
  1. IRINOTECAN HCL [Suspect]
     Indication: OVARIAN CANCER
     Dosage: 26 MG, INTRAVENOUS
     Route: 042
     Dates: start: 20060510, end: 20060513
  2. CISPLATIN [Concomitant]

REACTIONS (1)
  - GASTROINTESTINAL PERFORATION [None]
